FAERS Safety Report 9200678 (Version 1)
Quarter: 2013Q1

REPORT INFORMATION
  Report Type: Spontaneous
  Country: GB (occurrence: GB)
  Receive Date: 20130331
  Receipt Date: 20130331
  Transmission Date: 20140127
  Serious: Yes (Other)
  Sender: FDA-Public Use
  Company Number: GB-TEVA-394407ISR

PATIENT
  Age: 50 Year
  Sex: Female
  Weight: 54 kg

DRUGS (12)
  1. PREDNISOLONE [Suspect]
     Indication: SYSTEMIC LUPUS ERYTHEMATOSUS
     Dosage: 20MG INITIALLY. FROM APRIL 12 - NOVEMBER 12 I STOPPED STEROIDS.
     Dates: start: 200712
  2. PREDNISOLONE [Suspect]
     Indication: SYSTEMIC LUPUS ERYTHEMATOSUS
     Dates: start: 201212
  3. HYDROXYCHLOROQUINE [Suspect]
     Indication: CONNECTIVE TISSUE DISORDER
     Dosage: BRIEF PERIOD OF STOPPING FEB 12 - AUG 12.
     Dates: start: 200701, end: 201202
  4. HYDROXYCHLOROQUINE [Suspect]
     Indication: CONNECTIVE TISSUE DISORDER
     Dosage: BRIEF PERIOD OF STOPPING FEB 12 - AUG 12.
     Dates: start: 201209
  5. VOLTAROL [Concomitant]
     Route: 048
  6. CO-CODAMOL [Concomitant]
     Dosage: 30/500MG
  7. FERROUS FUMARATE [Concomitant]
  8. OPTICROM [Concomitant]
     Dosage: 2 DROPS EACH EYE BD
     Route: 050
  9. BECONASE [Concomitant]
     Dosage: 2 PUFFS EACH NOSTRIL BD
     Route: 045
  10. AMITRIPTYLINE [Concomitant]
     Dosage: 1 NOCTE
  11. OSTEOCARE [Concomitant]
     Route: 048
  12. EVENING PRIMROSE OIL [Concomitant]

REACTIONS (7)
  - Pain [Not Recovered/Not Resolved]
  - Rash [Not Recovered/Not Resolved]
  - Paraesthesia [Not Recovered/Not Resolved]
  - Photosensitivity reaction [Not Recovered/Not Resolved]
  - Erythema [Not Recovered/Not Resolved]
  - Facial pain [Not Recovered/Not Resolved]
  - Inflammation [Not Recovered/Not Resolved]
